FAERS Safety Report 23909225 (Version 1)
Quarter: 2024Q2

REPORT INFORMATION
  Report Type: Spontaneous
  Country: US (occurrence: US)
  Receive Date: 20240528
  Receipt Date: 20240528
  Transmission Date: 20240716
  Serious: Yes (Death, Other)
  Sender: FDA-Public Use
  Company Number: US-BAYER-2024A076439

PATIENT
  Sex: Male

DRUGS (2)
  1. TINACTIN [Suspect]
     Active Substance: TOLNAFTATE
  2. LOTRIMIN [Suspect]
     Active Substance: CLOTRIMAZOLE

REACTIONS (1)
  - Mesothelioma [Fatal]
